FAERS Safety Report 19215060 (Version 1)
Quarter: 2021Q2

REPORT INFORMATION
  Report Type: Other
  Country: SE (occurrence: SE)
  Receive Date: 20210505
  Receipt Date: 20210505
  Transmission Date: 20210717
  Serious: Yes (Other)
  Sender: FDA-Public Use
  Company Number: SE-DENTSPLY-2021SCDP000134

PATIENT
  Age: 22 Year
  Sex: Female

DRUGS (1)
  1. XYLOCAINE [Suspect]
     Active Substance: LIDOCAINE HYDROCHLORIDE
     Indication: ANAESTHESIA PROCEDURE
     Dosage: UNK 20 MG / ML + 12.5 MICROGRAMS / ML 2 AMPOULES, MANDIBULAR INJECTION (INJECTION FLUID, SOLUTION)
     Dates: start: 20210202, end: 20210202

REACTIONS (2)
  - Dyspnoea [Recovered/Resolved]
  - Swollen tongue [Recovered/Resolved]

NARRATIVE: CASE EVENT DATE: 20210202
